FAERS Safety Report 9465918 (Version 2)
Quarter: 2013Q3

REPORT INFORMATION
  Report Type: Spontaneous
  Country: IT (occurrence: IT)
  Receive Date: 20130820
  Receipt Date: 20130918
  Transmission Date: 20140515
  Serious: Yes (Hospitalization)
  Sender: FDA-Public Use
  Company Number: IT-ELI_LILLY_AND_COMPANY-IT201308002877

PATIENT
  Age: 58 Year
  Sex: Male

DRUGS (2)
  1. ALIMTA [Suspect]
     Indication: NON-SMALL CELL LUNG CANCER
     Dosage: 740 MG, CYCLICAL
     Route: 042
     Dates: start: 20121214
  2. XGEVA [Suspect]
     Indication: METASTASES TO BONE
     Dosage: 120 MG, MONTHLY (1/M)
     Route: 058
     Dates: start: 20130711, end: 20130711

REACTIONS (8)
  - Cholestasis [Recovered/Resolved with Sequelae]
  - Herpes simplex [Recovered/Resolved with Sequelae]
  - Hyperpyrexia [Recovered/Resolved with Sequelae]
  - Sepsis [Recovered/Resolved with Sequelae]
  - Hypertransaminasaemia [Recovered/Resolved with Sequelae]
  - Neutrophil count decreased [Unknown]
  - Blood creatinine increased [Unknown]
  - Hypocalcaemia [Unknown]
